FAERS Safety Report 25024414 (Version 5)
Quarter: 2025Q3

REPORT INFORMATION
  Report Type: Report from Study
  Country: CA (occurrence: CA)
  Receive Date: 20250228
  Receipt Date: 20250923
  Transmission Date: 20251021
  Serious: Yes (Other)
  Sender: TAKEDA
  Company Number: CA-TAKEDA-2024TUS111020

PATIENT
  Age: 41 Year
  Sex: Female

DRUGS (5)
  1. VEDOLIZUMAB [Suspect]
     Active Substance: VEDOLIZUMAB
     Indication: Colitis ulcerative
  2. VEDOLIZUMAB [Suspect]
     Active Substance: VEDOLIZUMAB
     Dosage: 300 MILLIGRAM, Q4WEEKS
     Dates: start: 20250226
  3. EFFEXOR [Concomitant]
     Active Substance: VENLAFAXINE HYDROCHLORIDE
  4. CETIRIZINE [Concomitant]
     Active Substance: CETIRIZINE HYDROCHLORIDE
  5. RINVOQ [Concomitant]
     Active Substance: UPADACITINIB

REACTIONS (18)
  - Haematochezia [Unknown]
  - Colitis [Unknown]
  - Remission not achieved [Unknown]
  - Bacterial vaginosis [Unknown]
  - Abdominal pain lower [Unknown]
  - Defaecation urgency [Unknown]
  - Mucous stools [Unknown]
  - Limb discomfort [Unknown]
  - Off label use [Unknown]
  - Sluggishness [Unknown]
  - Diarrhoea [Unknown]
  - Abdominal pain [Unknown]
  - Urinary tract infection [Unknown]
  - Asthenia [Unknown]
  - Muscular weakness [Unknown]
  - Haemorrhoids [Unknown]
  - Nasopharyngitis [Unknown]
  - Influenza [Unknown]

NARRATIVE: CASE EVENT DATE: 20250226
